FAERS Safety Report 8573571-1 (Version None)
Quarter: 2012Q2

REPORT INFORMATION
  Report Type: 
  Country: None (occurrence: None)
  Receive Date: 20120423
  Receipt Date: 20100308
  Transmission Date: 20120825
  Serious: Yes (Hospitalization)
  Sender: FDA-Public Use
  Company Number: PHEH2009US17762

PATIENT
  Age: 13 Year
  Sex: Female

DRUGS (6)
  1. EXJADE [Suspect]
     Indication: IRON OVERLOAD
     Dosage: 500 MG, QD, ORAL
     Route: 048
  2. EXJADE [Suspect]
     Indication: SICKLE CELL ANAEMIA
     Dosage: 500 MG, QD, ORAL
     Route: 048
  3. TRILEPTAL [Concomitant]
  4. DESFERAL [Concomitant]
  5. BLOOD TRANSFUSION, AUXILIARY PRODUCTS (NO INGREDIENTS/SUBSTANCES) [Concomitant]
  6. PENICILLIN V POTASSIUM (PHENOXYMETHYLPENICILLIN POTASSIUM) [Concomitant]

REACTIONS (3)
  - DISEASE PROGRESSION [None]
  - TRANSFUSION [None]
  - TREATMENT NONCOMPLIANCE [None]
